FAERS Safety Report 11968376 (Version 2)
Quarter: 2016Q1

REPORT INFORMATION
  Report Type: Spontaneous
  Country: AT (occurrence: AT)
  Receive Date: 20160128
  Receipt Date: 20160202
  Transmission Date: 20160526
  Serious: Yes (Hospitalization)
  Sender: FDA-Public Use
  Company Number: AT-ROCHE-1699328

PATIENT
  Age: 52 Year
  Sex: Female
  Weight: 73.7 kg

DRUGS (2)
  1. TOCILIZUMAB [Suspect]
     Active Substance: TOCILIZUMAB
     Indication: RHEUMATOID ARTHRITIS
     Dosage: 4 MOST RECENT INFUSIONS PRIOR TO AE: 02/DEC/2015 (8MG/KG) I.V.,
     Route: 041
     Dates: start: 20151201, end: 20160119
  2. METHOTREXATE [Concomitant]
     Active Substance: METHOTREXATE
     Indication: RHEUMATOID ARTHRITIS
     Route: 058
     Dates: start: 201412

REACTIONS (3)
  - Drug hypersensitivity [Recovered/Resolved]
  - Arrhythmia [Recovered/Resolved]
  - Genitourinary tract infection [Unknown]

NARRATIVE: CASE EVENT DATE: 20160105
